FAERS Safety Report 11854266 (Version 1)
Quarter: 2015Q4

REPORT INFORMATION
  Report Type: Spontaneous
  Country: US (occurrence: US)
  Receive Date: 20151220
  Receipt Date: 20151220
  Transmission Date: 20160305
  Serious: No
  Sender: FDA-Public Use
  Company Number: US-ZYDUS-007789

PATIENT
  Sex: Female

DRUGS (1)
  1. RIBAVIRIN. [Suspect]
     Active Substance: RIBAVIRIN
     Indication: HEPATITIS C
     Dosage: 600 MG QAM,400MG QPM, ORAL
     Route: 048

REACTIONS (1)
  - Pregnancy [Unknown]
